FAERS Safety Report 25401417 (Version 1)
Quarter: 2025Q2

REPORT INFORMATION
  Report Type: Spontaneous
  Country: IN (occurrence: IN)
  Receive Date: 20250605
  Receipt Date: 20250605
  Transmission Date: 20250717
  Serious: Yes (Other)
  Sender: PFIZER
  Company Number: IN-PFIZER INC-PV202500066727

PATIENT
  Age: 47 Year
  Sex: Male
  Weight: 73.1 kg

DRUGS (1)
  1. DACOMITINIB [Suspect]
     Active Substance: DACOMITINIB
     Dosage: 30 MG, 1X/DAY
     Route: 048

REACTIONS (4)
  - Electrocardiogram QT prolonged [Unknown]
  - Rash [Unknown]
  - Infected cyst [Unknown]
  - Pustule [Unknown]

NARRATIVE: CASE EVENT DATE: 20240101
